FAERS Safety Report 5104916-2 (Version None)
Quarter: 2006Q3

REPORT INFORMATION
  Report Type: 
  Country: None (occurrence: None)
  Receive Date: 20060911
  Receipt Date: 20060911
  Transmission Date: 20061208
  Serious: Yes (Hospitalization)
  Sender: FDA-Public Use
  Company Number: None

PATIENT
  Sex: Female
  Weight: 78.18 kg

DRUGS (4)
  1. MERCAPTOPURINE [Suspect]
     Dosage: 11449 MG
  2. METHOTREXATE [Suspect]
     Dosage: 380 MG
  3. VINCRISTINE SULFATE [Suspect]
     Dosage: 6 MG
  4. DEXAMETHASONE TAB [Suspect]
     Dosage: 150 MG

REACTIONS (8)
  - ALANINE AMINOTRANSFERASE INCREASED [None]
  - ASPARTATE AMINOTRANSFERASE INCREASED [None]
  - BLOOD BILIRUBIN INCREASED [None]
  - DEHYDRATION [None]
  - DRUG TOXICITY [None]
  - GALLBLADDER DISORDER [None]
  - GASTROENTERITIS VIRAL [None]
  - OCULAR ICTERUS [None]
